FAERS Safety Report 21736369 (Version 1)
Quarter: 2022Q4

REPORT INFORMATION
  Report Type: Report from Study
  Country: IT (occurrence: IT)
  Receive Date: 20221215
  Receipt Date: 20221215
  Transmission Date: 20230113
  Serious: Yes (Hospitalization, Other)
  Sender: FDA-Public Use
  Company Number: IT-JNJFOC-20170812127

PATIENT
  Age: 67 Year
  Sex: Female

DRUGS (1)
  1. TRABECTEDIN [Suspect]
     Active Substance: TRABECTEDIN
     Indication: Ovarian cancer
     Route: 042
     Dates: start: 20170821, end: 20170821

REACTIONS (5)
  - Intestinal obstruction [Unknown]
  - Alanine aminotransferase increased [Recovered/Resolved]
  - Gastroenteritis [Recovered/Resolved]
  - Sepsis [Recovered/Resolved]
  - Aspartate aminotransferase increased [Recovered/Resolved]

NARRATIVE: CASE EVENT DATE: 20170823
